FAERS Safety Report 4411059-X (Version None)
Quarter: 2004Q2

REPORT INFORMATION
  Report Type: 
  Country: None (occurrence: None)
  Receive Date: 20040630
  Receipt Date: 20040512
  Transmission Date: 20050107
  Serious: No
  Sender: FDA-Public Use
  Company Number: 04P-163-0260474-00

PATIENT
  Age: 60 Year
  Sex: Female
  Weight: 59.8748 kg

DRUGS (7)
  1. HUMIRA [Suspect]
     Indication: RHEUMATOID ARTHRITIS
     Dosage: 40 MG, 1 IN 2 WK, PER ORAL
     Route: 048
     Dates: start: 20040512
  2. METHOTREXATE [Concomitant]
  3. CELECOXIB [Concomitant]
  4. HYDROXYCHLOROQUINE PHOSPHATE [Concomitant]
  5. RISEDRONATE SODIUM [Concomitant]
  6. TOCOPHEROL CONCENTRATE CAP [Concomitant]
  7. OXIBOOST [Concomitant]

REACTIONS (4)
  - CONJUNCTIVAL HAEMORRHAGE [None]
  - EYE PAIN [None]
  - EYE REDNESS [None]
  - INJECTION SITE BURNING [None]
